FAERS Safety Report 8420410-5 (Version None)
Quarter: 2012Q2

REPORT INFORMATION
  Report Type: 
  Country: None (occurrence: None)
  Receive Date: 20120607
  Receipt Date: 20120601
  Transmission Date: 20120825
  Serious: Yes (Hospitalization)
  Sender: FDA-Public Use
  Company Number: JP-MERCK-1206USA00938

PATIENT
  Age: 83 Year
  Sex: Female

DRUGS (12)
  1. HALCION [Concomitant]
     Indication: INSOMNIA
     Route: 048
  2. COMELIAN [Concomitant]
     Indication: PROTEIN URINE
     Route: 048
  3. PERSANTINE [Concomitant]
     Route: 048
  4. APLACE [Concomitant]
     Indication: GASTRITIS
     Route: 048
  5. FOSAMAX [Suspect]
     Indication: OSTEOPOROSIS
     Route: 048
  6. PEPCID RPD [Concomitant]
     Indication: ABDOMINAL PAIN UPPER
     Route: 048
  7. DEPAS [Concomitant]
     Indication: ANXIETY
     Route: 048
  8. SLOW-K [Concomitant]
     Route: 048
  9. KREMEZIN [Concomitant]
     Indication: RENAL FAILURE
     Route: 048
  10. ALANTA [Concomitant]
     Indication: GASTRITIS
     Route: 048
  11. PURSENNID (SENNOSIDES) [Concomitant]
     Indication: CONSTIPATION
     Route: 048
  12. MUCOSTA [Concomitant]
     Indication: ABDOMINAL PAIN UPPER
     Route: 048

REACTIONS (2)
  - FALL [None]
  - FEMUR FRACTURE [None]
